FAERS Safety Report 7104999-4 (Version None)
Quarter: 2010Q4

REPORT INFORMATION
  Report Type: 
  Country: None (occurrence: None)
  Receive Date: 20101116
  Receipt Date: 20101104
  Transmission Date: 20110411
  Serious: Yes (Hospitalization)
  Sender: FDA-Public Use
  Company Number: FR-PFIZER INC-2010145921

PATIENT
  Age: 26 Year
  Sex: Female

DRUGS (3)
  1. ATARAX [Suspect]
     Dosage: UNK
     Route: 048
     Dates: start: 20100723, end: 20100723
  2. RIVOTRIL [Suspect]
     Dosage: UNK
     Route: 048
     Dates: start: 20100723, end: 20100723
  3. ZYPREXA [Suspect]
     Dosage: UNK
     Route: 048
     Dates: start: 20100723, end: 20100723

REACTIONS (2)
  - INTENTIONAL OVERDOSE [None]
  - POISONING [None]
